FAERS Safety Report 20988424 (Version 1)
Quarter: 2022Q2

REPORT INFORMATION
  Report Type: Spontaneous
  Country: US (occurrence: None)
  Receive Date: 20220621
  Receipt Date: 20220621
  Transmission Date: 20220721
  Serious: Yes (Death, Other)
  Sender: FDA-Public Use
  Company Number: 2022A226999

PATIENT
  Age: 50 Year
  Sex: Female

DRUGS (5)
  1. OLAPARIB [Suspect]
     Active Substance: OLAPARIB
     Route: 048
  2. PEMBROLIZUMAB [Concomitant]
     Active Substance: PEMBROLIZUMAB
  3. FLUOROURACIL\IRINOTECAN\LEUCOVORIN [Concomitant]
     Active Substance: FLUOROURACIL\IRINOTECAN\LEUCOVORIN
  4. TEMOZOLOMIDE [Concomitant]
     Active Substance: TEMOZOLOMIDE
  5. CAPECITABINE [Concomitant]
     Active Substance: CAPECITABINE

REACTIONS (3)
  - Metastases to meninges [Fatal]
  - Malignant neoplasm progression [Fatal]
  - Drug ineffective [Unknown]
